FAERS Safety Report 12313353 (Version 4)
Quarter: 2016Q3

REPORT INFORMATION
  Report Type: Spontaneous
  Country: US (occurrence: US)
  Receive Date: 20160428
  Receipt Date: 20160722
  Transmission Date: 20161109
  Serious: No
  Sender: FDA-Public Use
  Company Number: US-PFIZER INC-2016232247

PATIENT
  Age: 81 Year
  Sex: Male
  Weight: 70 kg

DRUGS (19)
  1. ATORVASTATIN [Concomitant]
     Active Substance: ATORVASTATIN
     Indication: BLOOD CHOLESTEROL ABNORMAL
     Dosage: 40 MG, 1X/DAY
     Route: 048
     Dates: start: 2000
  2. XELJANZ [Suspect]
     Active Substance: TOFACITINIB CITRATE
     Indication: RHEUMATOID ARTHRITIS
     Dosage: 5 MG, 2X/DAY
     Dates: start: 201511
  3. TRIAMTERENE AND HYDROCHLOROTHIAZIDE [Concomitant]
     Active Substance: HYDROCHLOROTHIAZIDE\TRIAMTERENE
     Indication: BLOOD PRESSURE ABNORMAL
     Dosage: [TRIAMTERENE 37.5MG]/[HYDROCHLOROTHIAZIDE 25MG], 1X/DAY
     Route: 048
     Dates: start: 1996
  4. LOSARTAN. [Concomitant]
     Active Substance: LOSARTAN
     Indication: BLOOD PRESSURE ABNORMAL
     Dosage: 100 MG, 1X/DAY, AT NIGHT
     Route: 048
     Dates: start: 1999
  5. METOPROLOL ER [Concomitant]
     Active Substance: METOPROLOL SUCCINATE
     Indication: CARDIAC DISORDER
     Dosage: 25 MG, 1X/DAY
     Route: 048
     Dates: start: 2008
  6. OMEGA 3 FISH OIL [Concomitant]
     Active Substance: FISH OIL\OMEGA-3 FATTY ACIDS
     Indication: INFECTION
     Dosage: 300 MG, 1X/DAY
     Route: 048
     Dates: start: 2000
  7. SOY LECITHIN [Concomitant]
     Indication: NUTRITIONAL SUPPLEMENTATION
     Dosage: 1200 MG, 1X/DAY
     Route: 048
     Dates: start: 2006
  8. ASPIRIN. [Concomitant]
     Active Substance: ASPIRIN
     Indication: CARDIAC DISORDER
     Dosage: 81 MG, UNK
     Dates: start: 1999
  9. VITAMIN D3 [Concomitant]
     Active Substance: CHOLECALCIFEROL
     Indication: NUTRITIONAL SUPPLEMENTATION
     Dosage: 5000 IU, 1X/DAY
     Route: 048
     Dates: start: 2011
  10. VITAMIN B12 [Concomitant]
     Active Substance: CYANOCOBALAMIN
     Indication: VITAMIN SUPPLEMENTATION
     Dosage: 500 UG, 1X/DAY
     Route: 048
     Dates: start: 1996
  11. XELJANZ [Suspect]
     Active Substance: TOFACITINIB CITRATE
     Dosage: 5 MG, 2X/DAY
     Route: 048
     Dates: start: 201512
  12. CALCIUM+VITAMIN D3 [Concomitant]
     Indication: BONE DISORDER
     Dosage: 600 MG, 2X/DAY
     Route: 048
     Dates: start: 1960
  13. CORLANOR [Concomitant]
     Active Substance: IVABRADINE HYDROCHLORIDE
     Indication: CARDIAC DISORDER
     Dosage: 5 MG, 2X/DAY
     Route: 048
     Dates: start: 201510
  14. LOSARTAN. [Concomitant]
     Active Substance: LOSARTAN
     Indication: CARDIAC DISORDER
  15. METHOTREXATE. [Concomitant]
     Active Substance: METHOTREXATE
     Indication: RHEUMATOID ARTHRITIS
     Dosage: 10 MG, WEEKLY (4 TAB WEEKLY 2.5MG)
     Route: 048
     Dates: start: 1985
  16. FOLIC ACID. [Concomitant]
     Active Substance: FOLIC ACID
     Dosage: 1600 UG, TWO 800MCG TABLETS BY MOUTH EVERY MORNING
     Route: 048
     Dates: start: 1990
  17. VITAMIN E [Concomitant]
     Active Substance: .ALPHA.-TOCOPHEROL
     Indication: VITAMIN SUPPLEMENTATION
     Dosage: 400 IU, 1X/DAY
     Route: 048
     Dates: start: 2000
  18. VITAMIN C [Concomitant]
     Active Substance: ASCORBIC ACID
     Indication: VITAMIN SUPPLEMENTATION
     Dosage: 500 MG, 2X/DAY
     Route: 048
     Dates: start: 1960
  19. PROSTA METTO [Concomitant]
     Indication: PROSTATIC DISORDER
     Dosage: 1 DF, 2X/DAY, ONE IN THE MORNING AND ONE AT NIGHT

REACTIONS (2)
  - Dermatitis infected [Recovered/Resolved]
  - Rash macular [Recovered/Resolved]

NARRATIVE: CASE EVENT DATE: 201604
